FAERS Safety Report 8887620 (Version 1)
Quarter: 2012Q4

REPORT INFORMATION
  Report Type: Spontaneous
  Country: US (occurrence: None)
  Receive Date: 20121101
  Receipt Date: 20121101
  Transmission Date: 20130627
  Serious: Yes (Hospitalization)
  Sender: FDA-Public Use
  Company Number: None

PATIENT
  Age: 93 Year
  Sex: Female
  Weight: 46 kg

DRUGS (13)
  1. ALDACTONE [Concomitant]
  2. KCL [Concomitant]
  3. COREG [Concomitant]
  4. PLAVIX [Concomitant]
  5. DILANTIN [Concomitant]
  6. SERTRALINE [Concomitant]
  7. AZITHROMYCIN [Suspect]
     Indication: UPPER RESPIRATORY INFECTION
     Dosage: 500mg/250 daily po
     Route: 048
     Dates: start: 20121025, end: 20121028
  8. ISOSORBIDE MONONITRATE [Concomitant]
  9. ALTACE [Concomitant]
  10. PANTOPRAZOLE [Concomitant]
  11. ASPIRIN [Concomitant]
  12. SYNTHROID [Concomitant]
  13. PRAVACHOL [Concomitant]

REACTIONS (1)
  - Hallucination, visual [None]
